FAERS Safety Report 14229735 (Version 1)
Quarter: 2017Q4

REPORT INFORMATION
  Report Type: Spontaneous
  Country: US (occurrence: None)
  Receive Date: 20171128
  Receipt Date: 20171128
  Transmission Date: 20180321
  Serious: No
  Sender: FDA-Public Use
  Company Number: None

PATIENT
  Age: 76 Year
  Sex: Female
  Weight: 59.42 kg

DRUGS (5)
  1. TRAVATAN [Concomitant]
     Active Substance: TRAVOPROST
  2. MULTIVITAMIN [Concomitant]
     Active Substance: VITAMINS
  3. SIMBRINZA [Suspect]
     Active Substance: BRIMONIDINE TARTRATE\BRINZOLAMIDE
     Indication: INTRAOCULAR PRESSURE INCREASED
     Dosage: 1 DROP PER EYE 3 TIMES A DAY
     Dates: start: 20171019, end: 20171020
  4. AMLODIPINE [Concomitant]
     Active Substance: AMLODIPINE BESYLATE
  5. LOW DOSE ASPIRIN [Concomitant]
     Active Substance: ASPIRIN

REACTIONS (1)
  - Dry mouth [None]

NARRATIVE: CASE EVENT DATE: 20171019
